FAERS Safety Report 19642729 (Version 3)
Quarter: 2022Q1

REPORT INFORMATION
  Report Type: Spontaneous
  Country: US (occurrence: US)
  Receive Date: 20210730
  Receipt Date: 20220118
  Transmission Date: 20220423
  Serious: No
  Sender: FDA-Public Use
  Company Number: US-JNJFOC-20210750727

PATIENT

DRUGS (1)
  1. MENS ROGAINE EXTRA STRENGTH [Suspect]
     Active Substance: MINOXIDIL
     Indication: Product used for unknown indication
     Dosage: FREQUENCY- PRODUCT WAS USED OCCASIONALLY AND NOW REGULARLY.
     Route: 065
     Dates: start: 202010

REACTIONS (2)
  - Inappropriate schedule of product administration [Unknown]
  - Product formulation issue [Unknown]
